FAERS Safety Report 14404219 (Version 8)
Quarter: 2020Q3

REPORT INFORMATION
  Report Type: Spontaneous
  Country: IT (occurrence: IT)
  Receive Date: 20180117
  Receipt Date: 20200714
  Transmission Date: 20201102
  Serious: Yes (Life-Threatening, Hospitalization, Other)
  Sender: FDA-Public Use
  Company Number: IT-VALIDUS PHARMACEUTICALS LLC-IT-2018VAL000123

PATIENT

DRUGS (18)
  1. HYDROCHLOROTHIAZIDE. [Suspect]
     Active Substance: HYDROCHLOROTHIAZIDE
     Indication: TETANY
     Dosage: 50 MG, QD
     Route: 065
  2. WARFARIN [Concomitant]
     Active Substance: WARFARIN
     Indication: PRODUCT USED FOR UNKNOWN INDICATION
     Dosage: UNK
  3. CALCITRIOL. [Suspect]
     Active Substance: CALCITRIOL
     Indication: BLOOD CALCIUM
     Dosage: HIGH DOSES
     Route: 065
  4. CALCITRIOL. [Suspect]
     Active Substance: CALCITRIOL
     Indication: HYPOCALCAEMIA
     Dosage: 1 ?G, QD (1 ?G,1 IN 1 D)
     Route: 048
  5. CALCITRIOL. [Suspect]
     Active Substance: CALCITRIOL
     Indication: CHRONIC KIDNEY DISEASE
     Dosage: 1 ?G (0.25 ?G,1 IN 1 D)
     Route: 048
  6. CALCIUM CARBONATE. [Suspect]
     Active Substance: CALCIUM CARBONATE
     Indication: CHRONIC KIDNEY DISEASE
     Dosage: HIGH DOSES
     Route: 042
  7. CALCIUM CARBONATE. [Suspect]
     Active Substance: CALCIUM CARBONATE
     Indication: TETANY
  8. POTASSIUM CHLORIDE. [Concomitant]
     Active Substance: POTASSIUM CHLORIDE
     Indication: PRODUCT USED FOR UNKNOWN INDICATION
     Dosage: UNK
  9. CALCIUM CARBONATE. [Suspect]
     Active Substance: CALCIUM CARBONATE
     Indication: HYPOPARATHYROIDISM
     Dosage: 3000 MG, QD
     Route: 042
  10. CALCITRIOL. [Suspect]
     Active Substance: CALCITRIOL
     Indication: TETANY
     Dosage: 0.25 ?G, QD
     Route: 042
  11. HYDROCHLOROTHIAZIDE. [Suspect]
     Active Substance: HYDROCHLOROTHIAZIDE
     Indication: CHRONIC KIDNEY DISEASE
  12. CALCITRIOL. [Suspect]
     Active Substance: CALCITRIOL
     Indication: HYPOPARATHYROIDISM
     Dosage: 1 ?G (0.5 ?G,1 IN 1 D)
     Route: 048
  13. HYDROCHLOROTHIAZIDE. [Suspect]
     Active Substance: HYDROCHLOROTHIAZIDE
     Indication: HYPOPARATHYROIDISM
  14. ANTHRAQUINONE GLYCOSIDES [Suspect]
     Active Substance: ANTHRAQUINONE
     Indication: CONSTIPATION
     Dosage: 105 MG, QD, 1 IN 1 D
     Route: 048
  15. LEVOTHYROXINE. [Concomitant]
     Active Substance: LEVOTHYROXINE
     Indication: PRODUCT USED FOR UNKNOWN INDICATION
     Dosage: UNK
  16. FUROSEMIDE. [Suspect]
     Active Substance: FUROSEMIDE
     Indication: SEPSIS
     Dosage: UNK
     Route: 065
  17. TORASEMIDE [Suspect]
     Active Substance: TORSEMIDE
     Indication: SEPSIS
     Dosage: UNK
     Route: 065
  18. CALCIUM CARBONATE. [Suspect]
     Active Substance: CALCIUM CARBONATE
     Indication: HYPOCALCAEMIA

REACTIONS (18)
  - Milk-alkali syndrome [Recovered/Resolved]
  - Metabolic alkalosis [Recovered/Resolved]
  - Blood urea increased [Recovered/Resolved]
  - Blood creatinine increased [Recovered/Resolved]
  - Blood phosphorus decreased [Recovered/Resolved]
  - Blood 25-hydroxycholecalciferol decreased [Recovered/Resolved]
  - Vasoconstriction [Recovered/Resolved]
  - Hypercalcaemia [Recovered/Resolved]
  - Blood calcium increased [Recovered/Resolved]
  - Tetany [Recovered/Resolved]
  - Drug interaction [Recovered/Resolved]
  - Acute kidney injury [Recovered/Resolved]
  - Renal failure [Recovered/Resolved]
  - Blood potassium decreased [Recovered/Resolved]
  - Blood chloride decreased [Recovered/Resolved]
  - Blood parathyroid hormone decreased [Recovered/Resolved]
  - Blood bicarbonate increased [Recovered/Resolved]
  - Fall [Recovered/Resolved]
